FAERS Safety Report 11759856 (Version 2)
Quarter: 2020Q1

REPORT INFORMATION
  Report Type: Spontaneous
  Country: US (occurrence: US)
  Receive Date: 20151120
  Receipt Date: 20200324
  Transmission Date: 20200409
  Serious: Yes (Death, Hospitalization, Other)
  Sender: FDA-Public Use
  Company Number: US-009507513-1511USA010972

PATIENT
  Sex: Female
  Weight: 65.76 kg

DRUGS (1)
  1. JANUVIA [Suspect]
     Active Substance: SITAGLIPTIN PHOSPHATE
     Dosage: UNK
     Route: 048
     Dates: start: 200707, end: 201011

REACTIONS (17)
  - Dyspnoea at rest [Unknown]
  - Coronary artery disease [Unknown]
  - Headache [Unknown]
  - Metastases to liver [Unknown]
  - Malnutrition [Unknown]
  - Poor quality sleep [Unknown]
  - Gastrooesophageal reflux disease [Unknown]
  - Pancreatitis acute [Unknown]
  - Pancreatic carcinoma metastatic [Fatal]
  - Bile duct stone [Recovered/Resolved]
  - Liver scan abnormal [Unknown]
  - Aortic valve replacement [Unknown]
  - Depression [Unknown]
  - Nephrolithiasis [Unknown]
  - Aortic arteriosclerosis [Unknown]
  - Neuropathy peripheral [Unknown]
  - Platelet count decreased [Unknown]

NARRATIVE: CASE EVENT DATE: 2011
